FAERS Safety Report 8309749-1 (Version None)
Quarter: 2012Q2

REPORT INFORMATION
  Report Type: 
  Country: None (occurrence: None)
  Receive Date: 20120425
  Receipt Date: 20120410
  Transmission Date: 20120825
  Serious: Yes (Other)
  Sender: FDA-Public Use
  Company Number: PHHY2012KR014701

PATIENT
  Sex: Female
  Weight: 59 kg

DRUGS (3)
  1. BLOOD TRANSFUSION, AUXILIARY PRODUCTS [Concomitant]
  2. EXJADE [Suspect]
     Indication: IRON OVERLOAD
     Route: 048
     Dates: start: 20091014, end: 20100401
  3. EXJADE [Suspect]
     Indication: ACUTE MYELOID LEUKAEMIA

REACTIONS (6)
  - HERPES ZOSTER [None]
  - HYPERTENSION [None]
  - HYPERGLYCAEMIA [None]
  - ASTHENIA [None]
  - CONSTIPATION [None]
  - PYREXIA [None]
